FAERS Safety Report 15597449 (Version 2)
Quarter: 2018Q4

REPORT INFORMATION
  Report Type: Report from Study
  Country: None (occurrence: MX)
  Receive Date: 20181108
  Receipt Date: 20181130
  Transmission Date: 20190205
  Serious: Yes (Death)
  Sender: FDA-Public Use
  Company Number: MX-ABBVIE-18P-107-2548188-00

PATIENT
  Age: 51 Year
  Sex: Male

DRUGS (3)
  1. CARBAMAZEPINA [Concomitant]
     Active Substance: CARBAMAZEPINE
     Indication: EPILEPSY
  2. RANITIDINE. [Concomitant]
     Active Substance: RANITIDINE
     Indication: PROPHYLAXIS
  3. EPIVAL [Suspect]
     Active Substance: DIVALPROEX SODIUM
     Indication: EPILEPSY
     Dosage: 2-1-2
     Route: 048
     Dates: start: 2011, end: 20180831

REACTIONS (1)
  - Cardiac failure [Fatal]

NARRATIVE: CASE EVENT DATE: 20180831
